FAERS Safety Report 9648635 (Version 1)
Quarter: 2013Q4

REPORT INFORMATION
  Report Type: Spontaneous
  Country: US (occurrence: None)
  Receive Date: 20131025
  Receipt Date: 20131025
  Transmission Date: 20140711
  Serious: No
  Sender: FDA-Public Use
  Company Number: None

PATIENT
  Age: 63 Year
  Sex: Female
  Weight: 65.77 kg

DRUGS (20)
  1. XELJANZ [Suspect]
     Indication: RHEUMATOID ARTHRITIS
     Dosage: 5 MG TABLETS, 1 TABLET, TWICE DAILY, BY MOUTH
     Route: 048
     Dates: start: 20131016, end: 20131021
  2. PLACQUENIL [Concomitant]
  3. PREDNISONE [Concomitant]
  4. METHOTREXATE [Concomitant]
  5. LOSARTAN [Concomitant]
  6. AMLODIPINE [Concomitant]
  7. CYTOMEL [Concomitant]
  8. L-THYROXINE [Concomitant]
  9. WELLBUTRIN [Concomitant]
  10. RITALIN [Concomitant]
  11. ATENOLOL [Concomitant]
  12. VIT D [Concomitant]
  13. CPAP [Concomitant]
  14. OXYEN [Concomitant]
  15. ASA [Concomitant]
  16. CALCIUM [Concomitant]
  17. MAGNESIUM [Concomitant]
  18. BIOTIN [Concomitant]
  19. VITAMIN B12 [Concomitant]
  20. IRON [Concomitant]

REACTIONS (4)
  - Chills [None]
  - Hyperhidrosis [None]
  - Sleep disorder [None]
  - Activities of daily living impaired [None]
